FAERS Safety Report 5683901-6 (Version None)
Quarter: 2008Q1

REPORT INFORMATION
  Report Type: 
  Country: None (occurrence: None)
  Receive Date: 20080327
  Receipt Date: 20080327
  Transmission Date: 20080703
  Serious: Yes (Death)
  Sender: FDA-Public Use
  Company Number: None

PATIENT
  Age: 71 Year
  Sex: Male
  Weight: 107.1 kg

DRUGS (2)
  1. ARIXTRA [Suspect]
     Indication: THROMBOSIS
     Dosage: 2.5 MG DAILY SQ
     Route: 058
     Dates: start: 20070727, end: 20070816
  2. WARFARIN 7.5MG BRISTOL MEYERS SQUIBB [Suspect]
     Dosage: 7.5 MG DAILY PO
     Route: 048
     Dates: start: 20070812, end: 20070816

REACTIONS (1)
  - PNEUMATOSIS INTESTINALIS [None]
